FAERS Safety Report 9838630 (Version 2)
Quarter: 2014Q1

REPORT INFORMATION
  Report Type: Report from Study
  Country: BR (occurrence: BR)
  Receive Date: 20140123
  Receipt Date: 20140207
  Transmission Date: 20141002
  Serious: Yes (Other)
  Sender: FDA-Public Use
  Company Number: BR-BAYER-2014-007161

PATIENT
  Age: 60 Year
  Sex: Male
  Weight: 71 kg

DRUGS (1)
  1. NEXAVAR [Suspect]
     Indication: HEPATIC CANCER
     Dosage: 2 TABLETS IN THE MORNING AND 2 TABLETS AT NIGHT
     Route: 048
     Dates: start: 201303, end: 201306

REACTIONS (3)
  - Hepatic neoplasm [Not Recovered/Not Resolved]
  - Cerebrovascular accident [None]
  - Aphasia [Not Recovered/Not Resolved]
